FAERS Safety Report 5334905-4 (Version None)
Quarter: 2007Q2

REPORT INFORMATION
  Report Type: 
  Country: None (occurrence: None)
  Receive Date: 20070525
  Receipt Date: 20070514
  Transmission Date: 20071010
  Serious: Yes (Other)
  Sender: FDA-Public Use
  Company Number: US-ROCHE-496187

PATIENT
  Age: 53 Year
  Sex: Female
  Weight: 66.7 kg

DRUGS (1)
  1. BONIVA [Suspect]
     Indication: OSTEOPOROSIS
     Dosage: REPORTED AS EVERY MONTH
     Route: 048
     Dates: start: 20070414, end: 20070414

REACTIONS (6)
  - CHEST DISCOMFORT [None]
  - DYSPHAGIA [None]
  - DYSPNOEA [None]
  - INFLUENZA LIKE ILLNESS [None]
  - PHARYNGEAL OEDEMA [None]
  - RASH [None]
